FAERS Safety Report 10242700 (Version 2)
Quarter: 2014Q2

REPORT INFORMATION
  Report Type: Spontaneous
  Country: JP (occurrence: JP)
  Receive Date: 20140617
  Receipt Date: 20140626
  Transmission Date: 20141212
  Serious: Yes (Disabling, Other)
  Sender: FDA-Public Use
  Company Number: JP-PFIZER INC-2014164693

PATIENT
  Age: 92 Year
  Sex: Female

DRUGS (4)
  1. CELECOX [Suspect]
     Indication: OSTEOARTHRITIS
     Dosage: UNK, 2X/DAY
     Route: 048
  2. LOXONIN [Suspect]
     Indication: PAIN
     Dosage: AS NEEDED
     Route: 048
  3. HYALURONIC ACID [Concomitant]
     Dosage: UNK
  4. MAGMITT [Concomitant]
     Indication: CONSTIPATION
     Dosage: UNK

REACTIONS (14)
  - Neoplasm malignant [Unknown]
  - Convulsion [Unknown]
  - Cerebral infarction [Unknown]
  - Metastases to liver [Unknown]
  - Metastases to lung [Unknown]
  - Wheelchair user [Unknown]
  - Diarrhoea [Unknown]
  - Abdominal pain [Unknown]
  - Weight increased [Unknown]
  - Skin haemorrhage [Unknown]
  - Dizziness [Unknown]
  - Fatigue [Unknown]
  - Drug ineffective [Unknown]
  - Pain [Unknown]
